FAERS Safety Report 24907637 (Version 2)
Quarter: 2025Q1

REPORT INFORMATION
  Report Type: Spontaneous
  Country: BE (occurrence: BE)
  Receive Date: 20250131
  Receipt Date: 20250207
  Transmission Date: 20250408
  Serious: Yes (Death, Other)
  Sender: ABBVIE
  Company Number: BE-ABBVIE-6106606

PATIENT
  Age: 23 Year
  Sex: Female

DRUGS (1)
  1. BOTOX [Suspect]
     Active Substance: ONABOTULINUMTOXINA
     Indication: Lip cosmetic procedure
     Route: 065
     Dates: start: 202010, end: 202010

REACTIONS (11)
  - Venous injury [Fatal]
  - Cerebral thrombosis [Fatal]
  - Aphasia [Unknown]
  - Brain death [Fatal]
  - Lip pain [Unknown]
  - Headache [Unknown]
  - Coma [Unknown]
  - Vomiting [Unknown]
  - Gait inability [Unknown]
  - Migraine [Unknown]
  - Posture abnormal [Unknown]

NARRATIVE: CASE EVENT DATE: 20201001
